FAERS Safety Report 9049296 (Version 2)
Quarter: 2013Q1

REPORT INFORMATION
  Report Type: Spontaneous
  Country: FR (occurrence: FR)
  Receive Date: 20130205
  Receipt Date: 20130321
  Transmission Date: 20140127
  Serious: Yes (Other)
  Sender: FDA-Public Use
  Company Number: FR-ROCHE-1186324

PATIENT
  Age: 64 Year
  Sex: Male

DRUGS (3)
  1. VEMURAFENIB [Suspect]
     Indication: MALIGNANT MELANOMA
     Dosage: (240 MG) 4 TABS IN MORNING AND EVENING
     Route: 065
     Dates: start: 20120102
  2. VEMURAFENIB [Suspect]
     Route: 065
     Dates: start: 20130228
  3. PREVISCAN [Concomitant]

REACTIONS (1)
  - Radiation injury [Recovered/Resolved with Sequelae]
